FAERS Safety Report 8575956-6 (Version None)
Quarter: 2012Q3

REPORT INFORMATION
  Report Type: 
  Country: None (occurrence: None)
  Receive Date: 20120807
  Receipt Date: 20120727
  Transmission Date: 20120928
  Serious: Yes (Hospitalization)
  Sender: FDA-Public Use
  Company Number: US-BAYER-2012-076897

PATIENT
  Age: 17 Year
  Sex: Female
  Weight: 55.782 kg

DRUGS (5)
  1. YAZ [Suspect]
  2. FAMOTIDINE [Concomitant]
  3. DROSPIRENONE AND ETHINYL ESTRADIOL [Suspect]
  4. YASMIN [Suspect]
  5. DOCUSATE [Concomitant]

REACTIONS (2)
  - JUGULAR VEIN THROMBOSIS [None]
  - INTRACRANIAL VENOUS SINUS THROMBOSIS [None]
